FAERS Safety Report 7805276-6 (Version None)
Quarter: 2011Q4

REPORT INFORMATION
  Report Type: 
  Country: None (occurrence: None)
  Receive Date: 20111010
  Receipt Date: 20111003
  Transmission Date: 20120403
  Serious: Yes (Other)
  Sender: FDA-Public Use
  Company Number: GXBR2011US04827

PATIENT
  Sex: Male
  Weight: 155 kg

DRUGS (3)
  1. LITHIUM [Concomitant]
     Indication: BIPOLAR DISORDER
     Dosage: 150MG EVERY MORNING AND 75MG EVERY DAY
     Route: 048
  2. AMOXICILLIN [Suspect]
     Dosage: 500 MG, Q8H
     Route: 048
     Dates: start: 20110922, end: 20111001
  3. AMOXICILLIN [Suspect]
     Indication: INFECTION
     Dosage: 500 MG, ONCE2SDO
     Route: 048
     Dates: start: 20110922, end: 20110922

REACTIONS (8)
  - BIPOLAR DISORDER [None]
  - HEADACHE [None]
  - PARANOIA [None]
  - DEPRESSED MOOD [None]
  - PRURITUS [None]
  - AGGRESSION [None]
  - CONDITION AGGRAVATED [None]
  - ANGER [None]
